FAERS Safety Report 12100190 (Version 1)
Quarter: 2016Q1

REPORT INFORMATION
  Report Type: Spontaneous
  Country: US (occurrence: US)
  Receive Date: 20160222
  Receipt Date: 20160222
  Transmission Date: 20160526
  Serious: Yes (Other)
  Sender: FDA-Public Use
  Company Number: US-RECKITT BENCKISER HEALTHCARE INT LIMITED-RB-81976-2016

PATIENT
  Age: 70 Year
  Sex: Female

DRUGS (1)
  1. MUCINEX [Suspect]
     Active Substance: GUAIFENESIN
     Indication: PRODUCT USED FOR UNKNOWN INDICATION
     Dosage: 1 DF, BID
     Route: 065
     Dates: start: 20160212

REACTIONS (4)
  - Vaginal haemorrhage [Unknown]
  - Anal haemorrhage [Unknown]
  - Abdominal discomfort [Unknown]
  - Diarrhoea [Unknown]

NARRATIVE: CASE EVENT DATE: 20160213
